FAERS Safety Report 12317377 (Version 1)
Quarter: 2016Q2

REPORT INFORMATION
  Report Type: Spontaneous
  Country: US (occurrence: US)
  Receive Date: 20160429
  Receipt Date: 20160429
  Transmission Date: 20160815
  Serious: No
  Sender: FDA-Public Use
  Company Number: US-BIOGEN-2016BI00226114

PATIENT
  Sex: Male

DRUGS (1)
  1. TECFIDERA [Suspect]
     Active Substance: DIMETHYL FUMARATE
     Indication: MULTIPLE SCLEROSIS
     Route: 048
     Dates: start: 20140520, end: 20160416

REACTIONS (3)
  - Abdominal distension [Not Recovered/Not Resolved]
  - Constipation [Not Recovered/Not Resolved]
  - Diarrhoea [Not Recovered/Not Resolved]
